FAERS Safety Report 6583008-X (Version None)
Quarter: 2010Q1

REPORT INFORMATION
  Report Type: 
  Country: None (occurrence: None)
  Receive Date: 20100204
  Receipt Date: 20100119
  Transmission Date: 20100710
  Serious: Yes (Hospitalization)
  Sender: FDA-Public Use
  Company Number: DSA_42088_2009

PATIENT
  Sex: Male

DRUGS (9)
  1. DILTIAZEM HCL [Suspect]
     Indication: SUICIDE ATTEMPT
     Dosage: NOT THE PRESCRIBED AMOUNT
  2. LORAZEPAM [Suspect]
     Indication: SUICIDE ATTEMPT
     Dosage: NOT THE PRESCRIBIED AMOUNT
  3. TRANXILIUM (TRANXILIUM-CLORAZEPATE DIPOTASSIUM) (NOT SPECIFIED) [Suspect]
     Indication: SUICIDE ATTEMPT
     Dosage: NOT THE PRESCRIBED AMOUNT
  4. AMLODIPINE BESYLATE [Suspect]
     Indication: SUICIDE ATTEMPT
     Dosage: NOT THE PRESCRIBED AMOUNT
  5. FLUOXETINE [Suspect]
     Indication: SUICIDE ATTEMPT
     Dosage: NOT THE PRESCRIBED AMOUNT
  6. PROMETHAZINE [Suspect]
     Indication: SUICIDE ATTEMPT
     Dosage: NOT THE PRESCRIBED AMOUNT
  7. TIMONIL (TIMONIL-CARBAMAZEPINE) (NOT SPECIFIED) [Suspect]
     Dosage: NOT THE PRESCRIBED AMOUNT
  8. LYRICA [Suspect]
     Indication: SUICIDE ATTEMPT
     Dosage: NOT THE PRESCRIBED AMOUNT
  9. CO-DIOVANE-HYDROCHLOROTHIAZIDE/VALSARTAN) (NOT SPECIFIED) [Suspect]
     Indication: SUICIDE ATTEMPT
     Dosage: NOT THE PRESCRIBED AMOUNT

REACTIONS (3)
  - GASTROINTESTINAL SOUNDS ABNORMAL [None]
  - SOMNOLENCE [None]
  - SUICIDE ATTEMPT [None]
